FAERS Safety Report 20317734 (Version 2)
Quarter: 2022Q1

REPORT INFORMATION
  Report Type: Report from Study
  Country: GB (occurrence: GB)
  Receive Date: 20220110
  Receipt Date: 20220201
  Transmission Date: 20220423
  Serious: Yes (Hospitalization)
  Sender: FDA-Public Use
  Company Number: GB-TAKEDA-2021TUS067578

PATIENT
  Age: 78 Year
  Sex: Male

DRUGS (1)
  1. IXAZOMIB [Suspect]
     Active Substance: IXAZOMIB
     Indication: Plasma cell myeloma
     Dosage: UNK
     Route: 048
     Dates: start: 20210924

REACTIONS (14)
  - Epistaxis [Unknown]
  - Fatigue [Unknown]
  - Back pain [Not Recovered/Not Resolved]
  - Insomnia [Unknown]
  - Joint swelling [Unknown]
  - Erythema [Unknown]
  - Feeling hot [Unknown]
  - Carpal tunnel syndrome [Unknown]
  - Blood calcium decreased [Unknown]
  - Vitamin D decreased [Unknown]
  - Pain [Recovering/Resolving]
  - Rash [Unknown]
  - Diarrhoea [Recovered/Resolved]
  - Constipation [Unknown]

NARRATIVE: CASE EVENT DATE: 20211208
